FAERS Safety Report 4451841-6 (Version None)
Quarter: 2004Q3

REPORT INFORMATION
  Report Type: 
  Country: None (occurrence: None)
  Receive Date: 20040915
  Receipt Date: 20040915
  Transmission Date: 20050211
  Serious: Yes (Death)
  Sender: FDA-Public Use
  Company Number: None

PATIENT
  Sex: Female
  Weight: 66.6 kg

DRUGS (4)
  1. GEMCITIBINE [Suspect]
     Indication: LIPOSARCOMA METASTATIC
     Dosage: 1200 MG/M2 EVERY 3 WEEKS IV
     Route: 042
     Dates: start: 20040817, end: 20040824
  2. ZOCOR [Concomitant]
  3. PREVACID [Concomitant]
  4. COMPAZINE [Concomitant]

REACTIONS (3)
  - METASTASES TO LUNG [None]
  - RESPIRATORY FAILURE [None]
  - SARCOMA [None]
